FAERS Safety Report 8145161-6 (Version None)
Quarter: 2012Q1

REPORT INFORMATION
  Report Type: 
  Country: None (occurrence: None)
  Receive Date: 20120217
  Receipt Date: 20120213
  Transmission Date: 20120608
  Serious: Yes (Hospitalization, Other)
  Sender: FDA-Public Use
  Company Number: PHHY2011US68554

PATIENT
  Sex: Female
  Weight: 113 kg

DRUGS (15)
  1. EXJADE [Suspect]
     Indication: SICKLE CELL ANAEMIA
     Dosage: 500 MG, BID
     Route: 048
     Dates: start: 20060919, end: 20120109
  2. FERRITIN [Concomitant]
     Dosage: 13000 U, UNK
     Route: 065
  3. MEXATE [Concomitant]
     Dosage: UNK UKN, UNK
  4. ANALGESICS/PAIN MEDICATION [Concomitant]
     Dosage: UNK UKN, UNK
  5. SALINE [Concomitant]
     Dosage: UNK UKN, UNK
     Route: 065
  6. HYDREA [Concomitant]
     Dosage: UNK UKN, UNK
  7. MOBIC [Concomitant]
     Dosage: UNK UKN, UNK
     Route: 065
  8. WHOLE BLOOD [Concomitant]
     Dosage: 2 U,
  9. EXJADE [Suspect]
     Indication: IRON OVERLOAD
  10. ANTIBIOTICS [Concomitant]
     Dosage: UNK UKN, UNK
  11. PHENERGAN [Concomitant]
     Dosage: UNK UKN, UNK
  12. FOLIC ACID [Concomitant]
     Dosage: UNK UKN, UNK
  13. DEFEROXAMINE MESYLATE [Concomitant]
     Dosage: UNK UKN, UNK
     Route: 065
  14. DESYREL [Concomitant]
     Dosage: UNK UKN, UNK
  15. PREDNISONE [Concomitant]
     Dosage: UNK UKN, UNK

REACTIONS (33)
  - MIGRAINE [None]
  - PAIN [None]
  - HEPATIC CONGESTION [None]
  - ASPARTATE AMINOTRANSFERASE INCREASED [None]
  - CONSTIPATION [None]
  - PYELONEPHRITIS [None]
  - URINE LEUKOCYTE ESTERASE POSITIVE [None]
  - OSTEONECROSIS [None]
  - DEHYDRATION [None]
  - SICKLE CELL ANAEMIA WITH CRISIS [None]
  - RETICULOCYTE COUNT DECREASED [None]
  - BACK PAIN [None]
  - URINARY TRACT INFECTION [None]
  - BLOOD LACTATE DEHYDROGENASE INCREASED [None]
  - HAEMOGLOBIN DECREASED [None]
  - HEART RATE INCREASED [None]
  - OCULAR ICTERUS [None]
  - MUSCULOSKELETAL DISCOMFORT [None]
  - ELECTROLYTE IMBALANCE [None]
  - HUMAN CHORIONIC GONADOTROPIN NEGATIVE [None]
  - LEUKOCYTOSIS [None]
  - STRESS [None]
  - ALANINE AMINOTRANSFERASE INCREASED [None]
  - PAIN IN EXTREMITY [None]
  - BLOOD PRESSURE SYSTOLIC INCREASED [None]
  - ARTHRALGIA [None]
  - HYPOKALAEMIA [None]
  - NECK PAIN [None]
  - BLOOD BILIRUBIN INCREASED [None]
  - TACHYCARDIA [None]
  - ANAEMIA [None]
  - ERYTHROPOIESIS ABNORMAL [None]
  - CHEST PAIN [None]
